FAERS Safety Report 20976661 (Version 1)
Quarter: 2022Q2

REPORT INFORMATION
  Report Type: Spontaneous
  Country: US (occurrence: US)
  Receive Date: 20220617
  Receipt Date: 20220617
  Transmission Date: 20220721
  Serious: Yes (Other)
  Sender: FDA-Public Use
  Company Number: US-PFIZER INC-202200835608

PATIENT
  Age: 8 Day
  Sex: Female

DRUGS (1)
  1. HEPARIN SODIUM [Suspect]
     Active Substance: HEPARIN SODIUM
     Dosage: UNK
     Route: 064

REACTIONS (4)
  - Aortic thrombosis [Recovered/Resolved]
  - Umbilical cord abnormality [Unknown]
  - Limb discomfort [Unknown]
  - Maternal exposure during pregnancy [Unknown]
